FAERS Safety Report 20660185 (Version 1)
Quarter: 2022Q1

REPORT INFORMATION
  Report Type: Spontaneous
  Country: CN (occurrence: CN)
  Receive Date: 20220331
  Receipt Date: 20220331
  Transmission Date: 20220424
  Serious: Yes (Life-Threatening, Hospitalization, Other)
  Sender: FDA-Public Use
  Company Number: CN-PFIZER INC-202200458176

PATIENT
  Age: 45 Year
  Sex: Male
  Weight: 66 kg

DRUGS (4)
  1. IDARUBICIN [Suspect]
     Active Substance: IDARUBICIN
     Indication: Chemotherapy
     Dosage: 20 MG, 1X/DAY
     Route: 042
     Dates: start: 20220125, end: 20220127
  2. CYTARABINE [Suspect]
     Active Substance: CYTARABINE
     Indication: Chemotherapy
     Dosage: 0.15 G, 2X/DAY
     Route: 041
     Dates: start: 20220125, end: 20220131
  3. SODIUM CHLORIDE [Concomitant]
     Active Substance: SODIUM CHLORIDE
     Indication: Vehicle solution use
     Dosage: 500 ML, 2X/DAY
     Route: 041
     Dates: start: 20220125, end: 20220131
  4. SODIUM CHLORIDE [Concomitant]
     Active Substance: SODIUM CHLORIDE
     Dosage: 20 ML, 1X/DAY
     Route: 042
     Dates: start: 20220125, end: 20220127

REACTIONS (7)
  - Platelet count decreased [Unknown]
  - White blood cell count decreased [Unknown]
  - Neutropenia [Unknown]
  - Rash erythematous [Recovering/Resolving]
  - Rash papular [Unknown]
  - Haemorrhage subcutaneous [Unknown]
  - Myelosuppression [Unknown]

NARRATIVE: CASE EVENT DATE: 20220128
